FAERS Safety Report 7547687-2 (Version None)
Quarter: 2011Q2

REPORT INFORMATION
  Report Type: 
  Country: None (occurrence: None)
  Receive Date: 20110614
  Receipt Date: 20110203
  Transmission Date: 20111010
  Serious: No
  Sender: FDA-Public Use
  Company Number: US-BAYER-2011-014319

PATIENT
  Sex: Female
  Weight: 77.098 kg

DRUGS (1)
  1. ALEVE (CAPLET) [Suspect]
     Indication: ARTHRALGIA
     Dosage: UNK, BID, BOTTE COUNT 250S
     Route: 048

REACTIONS (1)
  - ARTHRALGIA [None]
